FAERS Safety Report 9632222 (Version 1)
Quarter: 2013Q4

REPORT INFORMATION
  Report Type: Spontaneous
  Country: ES (occurrence: ES)
  Receive Date: 20131018
  Receipt Date: 20131018
  Transmission Date: 20140711
  Serious: Yes (Other)
  Sender: FDA-Public Use
  Company Number: ALCN2013ES005161

PATIENT
  Age: 78 Year
  Sex: Male
  Weight: 74 kg

DRUGS (7)
  1. AZOPT [Suspect]
     Indication: GLAUCOMA
     Dosage: 1 GTT, TID
     Route: 047
     Dates: start: 20121117, end: 20130420
  2. EDEMOX [Suspect]
     Indication: GLAUCOMA
     Dosage: 250 MG, TID
     Route: 048
     Dates: start: 20121117, end: 20130420
  3. OMEPRAZOL STADA [Concomitant]
     Dosage: 20 MG, UNK
     Route: 048
     Dates: start: 201211
  4. ACOXXEL [Concomitant]
     Dosage: 60 MG, UNK
     Route: 048
     Dates: start: 201102
  5. SPIRIVA [Concomitant]
     Dosage: 18 UG, UNK
     Dates: start: 201011
  6. PLUSVENT [Concomitant]
     Dosage: 1 UNK, QD
     Dates: start: 20101112
  7. LYRICA [Concomitant]
     Dosage: 75 MG, UNK
     Route: 048

REACTIONS (1)
  - Bone marrow failure [Not Recovered/Not Resolved]
